FAERS Safety Report 6258805-0 (Version None)
Quarter: 2009Q3

REPORT INFORMATION
  Report Type: 
  Country: None (occurrence: None)
  Receive Date: 20090707
  Receipt Date: 20090701
  Transmission Date: 20100115
  Serious: Yes (Other)
  Sender: FDA-Public Use
  Company Number: BR-ASTRAZENECA-2009UW18514

PATIENT
  Age: 76 Year
  Sex: Male

DRUGS (2)
  1. NEXIUM [Suspect]
     Indication: OESOPHAGITIS
     Route: 048
     Dates: start: 20090401
  2. NEXIUM [Suspect]
     Route: 048
     Dates: start: 20090401

REACTIONS (1)
  - MOUTH CYST [None]
